FAERS Safety Report 12758793 (Version 1)
Quarter: 2016Q3

REPORT INFORMATION
  Report Type: Spontaneous
  Country: US (occurrence: US)
  Receive Date: 20160918
  Receipt Date: 20160918
  Transmission Date: 20161109
  Serious: Yes (Hospitalization)
  Sender: FDA-Public Use
  Company Number: None

PATIENT
  Age: 69 Year
  Sex: Female
  Weight: 44.55 kg

DRUGS (8)
  1. MAGNESIUM [Concomitant]
     Active Substance: MAGNESIUM
  2. VITAMIN D [Concomitant]
     Active Substance: CHOLECALCIFEROL
  3. CIPROFLOXACIN 500 MG TAB [Suspect]
     Active Substance: CIPROFLOXACIN
     Indication: GASTROINTESTINAL INFECTION
     Route: 048
     Dates: start: 20160620, end: 20160629
  4. LISINOPRIL. [Concomitant]
     Active Substance: LISINOPRIL
  5. ASPIRIN. [Concomitant]
     Active Substance: ASPIRIN
  6. SIMVASTATIN. [Concomitant]
     Active Substance: SIMVASTATIN
  7. CETIRIZINE [Concomitant]
     Active Substance: CETIRIZINE HYDROCHLORIDE
  8. FISH OIL [Concomitant]
     Active Substance: FISH OIL

REACTIONS (7)
  - Erythema [None]
  - Bedridden [None]
  - Joint warmth [None]
  - Weight bearing difficulty [None]
  - Tendon disorder [None]
  - Musculoskeletal stiffness [None]
  - Tendon rupture [None]

NARRATIVE: CASE EVENT DATE: 20160703
